FAERS Safety Report 12429950 (Version 1)
Quarter: 2016Q2

REPORT INFORMATION
  Report Type: Spontaneous
  Country: US (occurrence: US)
  Receive Date: 20160602
  Receipt Date: 20160602
  Transmission Date: 20160815
  Serious: Yes (Other)
  Sender: FDA-Public Use
  Company Number: US-KADMON PHARMACEUTICALS, LLC-KAD201505-001390

PATIENT
  Sex: Female

DRUGS (2)
  1. RIBAVIRIN. [Suspect]
     Active Substance: RIBAVIRIN
  2. INTERFERON [Suspect]
     Active Substance: INTERFERON

REACTIONS (2)
  - Anxiety [Recovered/Resolved with Sequelae]
  - General physical health deterioration [Unknown]
